FAERS Safety Report 6663183-9 (Version None)
Quarter: 2010Q1

REPORT INFORMATION
  Report Type: 
  Country: None (occurrence: None)
  Receive Date: 20100330
  Receipt Date: 20100330
  Transmission Date: 20100710
  Serious: Yes (Other)
  Sender: FDA-Public Use
  Company Number: None

PATIENT
  Age: 32 Year
  Sex: Female
  Weight: 95.2554 kg

DRUGS (1)
  1. PROPRANOLOL [Suspect]
     Indication: MIGRAINE
     Dosage: 60MG BID PO
     Route: 048

REACTIONS (3)
  - PRODUCT FORMULATION ISSUE [None]
  - PRODUCT SUBSTITUTION ISSUE [None]
  - VOMITING [None]
